FAERS Safety Report 5011622-1 (Version None)
Quarter: 2006Q2

REPORT INFORMATION
  Report Type: 
  Country: None (occurrence: None)
  Receive Date: 20060404
  Receipt Date: 20060131
  Transmission Date: 20061013
  Serious: No
  Sender: FDA-Public Use
  Company Number: US200601003730

PATIENT
  Sex: Female

DRUGS (2)
  1. CYMBALTA [Suspect]
  2. XANAX /USA/ (ALOPRAZOLAM) [Concomitant]

REACTIONS (4)
  - PRURITUS [None]
  - SPEECH DISORDER [None]
  - SWELLING FACE [None]
  - SWOLLEN TONGUE [None]
